FAERS Safety Report 9290967 (Version 2)
Quarter: 2013Q3

REPORT INFORMATION
  Report Type: Spontaneous
  Country: US (occurrence: US)
  Receive Date: 20130515
  Receipt Date: 20130701
  Transmission Date: 20140515
  Serious: Yes (Disabling, Other)
  Sender: FDA-Public Use
  Company Number: US-BAYER-2013-057630

PATIENT
  Sex: Female

DRUGS (10)
  1. BETASERON [Suspect]
     Dosage: 0.25 MG, UNK
     Route: 058
  2. WELLBUTRIN SR [Concomitant]
     Dosage: 150 MG, UNK
  3. NAPROXEN [Concomitant]
     Dosage: 375 MG, UNK
  4. AXID [Concomitant]
     Dosage: 150 MG, UNK
  5. TRICOR [Concomitant]
     Dosage: 145 MG, UNK
  6. VALIUM [Concomitant]
     Dosage: 2 MG, UNK
  7. ACYCLOVIR [ACICLOVIR] [Concomitant]
     Dosage: 400 MG, UNK
  8. ARICEPT [Concomitant]
     Dosage: 10 MG, UNK
  9. NAMENDA [Concomitant]
     Dosage: 10 MG, UNK
  10. PROVIGIL [Concomitant]
     Dosage: 100 MG, UNK

REACTIONS (6)
  - Secondary progressive multiple sclerosis [None]
  - Injection site pain [None]
  - Injection site haemorrhage [None]
  - Abasia [None]
  - Multiple sclerosis [None]
  - Coordination abnormal [None]
